FAERS Safety Report 6570791-2 (Version None)
Quarter: 2010Q1

REPORT INFORMATION
  Report Type: 
  Country: None (occurrence: None)
  Receive Date: 20100204
  Receipt Date: 20100125
  Transmission Date: 20100710
  Serious: Yes (Other)
  Sender: FDA-Public Use
  Company Number: US-BAXTER-2010BH001857

PATIENT
  Sex: Male

DRUGS (1)
  1. HYDROMORPHONE HYDROCHLORIDE [Suspect]
     Indication: DRUG USE FOR UNKNOWN INDICATION
     Route: 065
     Dates: start: 20090801

REACTIONS (5)
  - DEVICE FAILURE [None]
  - DYSPNOEA [None]
  - MEMORY IMPAIRMENT [None]
  - OVERDOSE [None]
  - PAIN IN EXTREMITY [None]
